FAERS Safety Report 6765901-8 (Version None)
Quarter: 2010Q2

REPORT INFORMATION
  Report Type: 
  Country: None (occurrence: None)
  Receive Date: 20100609
  Receipt Date: 20100526
  Transmission Date: 20101027
  Serious: Yes (Hospitalization)
  Sender: FDA-Public Use
  Company Number: 2010SP001479

PATIENT
  Age: 81 Year
  Sex: Male
  Weight: 73.9 kg

DRUGS (8)
  1. OMNARIS [Suspect]
     Indication: RHINORRHOEA
     Dosage: NASAL, 200 UG;BID;NASAL, 1X; NASAL
     Route: 045
     Dates: end: 20100101
  2. OMNARIS [Suspect]
     Indication: RHINORRHOEA
     Dosage: NASAL, 200 UG;BID;NASAL, 1X; NASAL
     Route: 045
     Dates: start: 20100501, end: 20100519
  3. OMNARIS [Suspect]
     Indication: RHINORRHOEA
     Dosage: NASAL, 200 UG;BID;NASAL, 1X; NASAL
     Route: 045
     Dates: start: 20100530, end: 20100530
  4. PLAVIX [Concomitant]
  5. SINGULAIR [Concomitant]
  6. ASPIRIN [Concomitant]
  7. DIURETICS [Concomitant]
  8. VITAMIN K /00854101/ [Concomitant]

REACTIONS (21)
  - ACTIVATED PARTIAL THROMBOPLASTIN TIME PROLONGED [None]
  - ARRHYTHMIA [None]
  - CARDIOMEGALY [None]
  - DEEP VEIN THROMBOSIS [None]
  - DRUG INEFFECTIVE [None]
  - EPISTAXIS [None]
  - FALL [None]
  - FLUID RETENTION [None]
  - HYPONATRAEMIA [None]
  - INFECTION [None]
  - INJURY [None]
  - INTERNATIONAL NORMALISED RATIO INCREASED [None]
  - LETHARGY [None]
  - LIVER FUNCTION TEST ABNORMAL [None]
  - MALAISE [None]
  - PLATELET COUNT DECREASED [None]
  - PROTHROMBIN LEVEL INCREASED [None]
  - PROTHROMBIN TIME PROLONGED [None]
  - SOMNOLENCE [None]
  - VENOUS OCCLUSION [None]
  - VENOUS THROMBOSIS [None]
